FAERS Safety Report 16775377 (Version 3)
Quarter: 2019Q3

REPORT INFORMATION
  Report Type: Report from Study
  Country: US (occurrence: US)
  Receive Date: 20190905
  Receipt Date: 20190925
  Transmission Date: 20191005
  Serious: Yes (Other)
  Sender: FDA-Public Use
  Company Number: US-JNJFOC-20190901145

PATIENT
  Age: 76 Year
  Sex: Female

DRUGS (1)
  1. IMBRUVICA [Suspect]
     Active Substance: IBRUTINIB
     Indication: CHRONIC LYMPHOCYTIC LEUKAEMIA
     Dosage: 420 MG, QD
     Route: 048
     Dates: start: 20190812

REACTIONS (5)
  - Product dose omission [Unknown]
  - Haemoglobin decreased [Unknown]
  - Drug ineffective [Unknown]
  - White blood cell count increased [Unknown]
  - Hypersomnia [Unknown]

NARRATIVE: CASE EVENT DATE: 201908
